FAERS Safety Report 9209653 (Version 1)
Quarter: 2013Q1

REPORT INFORMATION
  Report Type: Spontaneous
  Country: US (occurrence: None)
  Receive Date: 20120820
  Receipt Date: 20120820
  Transmission Date: 20140127
  Serious: No
  Sender: FDA-Public Use
  Company Number: 1000030198

PATIENT
  Age: 84 Year
  Sex: Female

DRUGS (1)
  1. VIIBRYD [Suspect]
     Indication: DEPRESSION
     Dosage: 10 MG, 1 IN 1 D
     Route: 048
     Dates: start: 201204, end: 201204

REACTIONS (1)
  - Oedema peripheral [None]
